FAERS Safety Report 6655343 (Version 2)
Quarter: 2013Q1

REPORT INFORMATION
  Report Type: Spontaneous
  Country: CA (occurrence: CA)
  Receive Date: 20080602
  Receipt Date: 20130312
  Transmission Date: 20140127
  Serious: Yes (Life-Threatening, Other)
  Sender: FDA-Public Use
  Company Number: CA-PFIZER INC-2008031235

PATIENT
  Age: 42 Year
  Sex: Male
  Weight: 77.1 kg

DRUGS (6)
  1. CHAMPIX [Suspect]
     Indication: NICOTINE DEPENDENCE
     Dosage: 0.5 MG AND 1 MG
     Route: 048
     Dates: start: 20080102, end: 20080306
  2. CLONAZEPAM [Concomitant]
     Indication: INSOMNIA
     Dosage: 0.5 MG, 1 TABLET DAILY AT BEDTIME
     Route: 048
     Dates: start: 20001117
  3. ACETYLSALICYLIC ACID [Concomitant]
     Indication: PROPHYLAXIS
     Dosage: 1 TABLET
     Route: 048
     Dates: start: 20040925
  4. MICARDIS [Concomitant]
     Indication: HYPERTENSION
     Dosage: 80 MG, 1 TABLET DAILY IN THE MORNING
     Route: 048
     Dates: start: 20071204
  5. TAMBOCOR [Concomitant]
     Indication: ARRHYTHMIA
     Dosage: 100 MG, 1 TABLET 2X/DAY
     Route: 048
     Dates: start: 20010426
  6. CIPROFLOXACIN [Concomitant]
     Indication: SINUSITIS
     Dosage: 1 TABLET TWICE DAILY
     Route: 048
     Dates: start: 20080205, end: 20080215

REACTIONS (3)
  - Homicidal ideation [Recovered/Resolved]
  - Suicidal ideation [Recovered/Resolved]
  - Depression [Recovered/Resolved]
